FAERS Safety Report 6214605-9 (Version None)
Quarter: 2009Q2

REPORT INFORMATION
  Report Type: 
  Country: None (occurrence: None)
  Receive Date: 20090604
  Receipt Date: 20090522
  Transmission Date: 20091009
  Serious: Yes (Hospitalization)
  Sender: FDA-Public Use
  Company Number: GB-PFIZER INC-2009216888

PATIENT
  Age: 68 Year

DRUGS (13)
  1. CHAMPIX [Suspect]
     Indication: SMOKING CESSATION THERAPY
     Dosage: 1 MG, UNK
     Route: 048
     Dates: start: 20090123, end: 20090205
  2. ADCAL [Concomitant]
     Route: 048
  3. ALENDRONIC ACID [Concomitant]
     Dosage: 10 MG, UNK
     Route: 048
  4. ACETYLSALICYLIC ACID [Concomitant]
     Route: 048
  5. ATORVASTATIN CALCIUM [Concomitant]
     Dosage: 10 MG, UNK
     Route: 048
  6. ISOSORBIDE MONONITRATE [Concomitant]
     Route: 048
  7. OMEPRAZOLE [Concomitant]
     Dosage: 40 MG, UNK
     Route: 048
  8. PARACETAMOL [Concomitant]
     Dosage: 500 MG, UNK
     Route: 048
  9. SALAMOL [Concomitant]
     Route: 048
  10. SENNA [Concomitant]
     Dosage: 7.5 MG, UNK
     Route: 048
  11. SERETIDE [Concomitant]
     Route: 055
  12. SLO-PHYLLIN [Concomitant]
     Dosage: 250 MG, UNK
     Route: 048
  13. TIOTROPIUM BROMIDE [Concomitant]

REACTIONS (1)
  - LOWER RESPIRATORY TRACT INFECTION [None]
